FAERS Safety Report 12464460 (Version 1)
Quarter: 2016Q2

REPORT INFORMATION
  Report Type: Spontaneous
  Country: DE (occurrence: DE)
  Receive Date: 20160614
  Receipt Date: 20160614
  Transmission Date: 20160815
  Serious: Yes (Other)
  Sender: FDA-Public Use
  Company Number: DE-ASTRAZENECA-2016SE61528

PATIENT
  Age: 49 Year
  Sex: Male

DRUGS (1)
  1. BELOC ZOK MITE [Suspect]
     Active Substance: METOPROLOL SUCCINATE
     Dosage: 47.5MG UNKNOWN
     Route: 048

REACTIONS (2)
  - Depression [Unknown]
  - Aggression [Unknown]
